FAERS Safety Report 24739413 (Version 1)
Quarter: 2024Q4

REPORT INFORMATION
  Report Type: Spontaneous
  Country: US (occurrence: US)
  Receive Date: 20241216
  Receipt Date: 20241216
  Transmission Date: 20250114
  Serious: Yes (Other)
  Sender: AMGEN
  Company Number: US-AMGEN-USASP2024242659

PATIENT

DRUGS (1)
  1. PREDNISONE [Suspect]
     Active Substance: PREDNISONE
     Indication: Asthma
     Dosage: UNK
     Route: 065

REACTIONS (14)
  - Adrenal insufficiency [Unknown]
  - Pneumonia [Unknown]
  - Gastrointestinal disorder [Unknown]
  - Cough [Unknown]
  - Behaviour disorder [Unknown]
  - Sleep disorder [Unknown]
  - Sinusitis [Unknown]
  - Fracture [Unknown]
  - Osteoporosis [Unknown]
  - Pharyngitis [Unknown]
  - Osteopenia [Unknown]
  - Hypertension [Unknown]
  - Obesity [Unknown]
  - Short stature [Unknown]
